FAERS Safety Report 7410041-8 (Version None)
Quarter: 2011Q2

REPORT INFORMATION
  Report Type: 
  Country: None (occurrence: None)
  Receive Date: 20110412
  Receipt Date: 20110406
  Transmission Date: 20111010
  Serious: No
  Sender: FDA-Public Use
  Company Number: JP-PFIZER INC-2011047038

PATIENT
  Age: 74 Year
  Sex: Male

DRUGS (6)
  1. TAKEPRON [Suspect]
     Indication: PRODUCT USED FOR UNKNOWN INDICATION
     Dosage: 15 MG DAILY
     Route: 048
     Dates: start: 20110207, end: 20110219
  2. ASPIRIN [Concomitant]
     Indication: ANGINA PECTORIS
     Dosage: UNK
     Route: 048
     Dates: start: 20110207
  3. LIPITOR [Suspect]
     Indication: HYPERCHOLESTEROLAEMIA
     Dosage: 10 MG, 1X/DAY
     Route: 048
     Dates: start: 20110207, end: 20110219
  4. MYSLEE [Concomitant]
     Indication: INSOMNIA
     Dosage: UNK
     Route: 065
     Dates: start: 20110208, end: 20110208
  5. CEFAMEZIN [Concomitant]
     Dosage: UNK
     Route: 051
     Dates: start: 20110208, end: 20110215
  6. PLAVIX [Concomitant]
     Indication: ANGINA PECTORIS
     Dosage: UNK
     Route: 048
     Dates: start: 20110207

REACTIONS (1)
  - DRUG ERUPTION [None]
